FAERS Safety Report 10252873 (Version 1)
Quarter: 2014Q2

REPORT INFORMATION
  Report Type: Spontaneous
  Country: US (occurrence: US)
  Receive Date: 20140623
  Receipt Date: 20140623
  Transmission Date: 20141212
  Serious: No
  Sender: FDA-Public Use
  Company Number: US-009507513-1405USA010384

PATIENT
  Sex: 0

DRUGS (3)
  1. SINGULAIR [Suspect]
     Indication: SEASONAL ALLERGY
     Dosage: UNK
     Route: 048
  2. CLARITIN [Suspect]
     Indication: SEASONAL ALLERGY
     Dosage: 2 TABLETS ONE DAY (ABOUT 4 HOURS APART)
     Route: 048
  3. ZYRTEC [Suspect]
     Dosage: UNK

REACTIONS (8)
  - Therapeutic response decreased [Not Recovered/Not Resolved]
  - Somnolence [Not Recovered/Not Resolved]
  - Dry eye [Not Recovered/Not Resolved]
  - Urinary retention [Not Recovered/Not Resolved]
  - Dry mouth [Not Recovered/Not Resolved]
  - Feeling abnormal [Not Recovered/Not Resolved]
  - Eye disorder [Not Recovered/Not Resolved]
  - Drug effect incomplete [Not Recovered/Not Resolved]
